FAERS Safety Report 5722354-6 (Version None)
Quarter: 2008Q2

REPORT INFORMATION
  Report Type: 
  Country: None (occurrence: None)
  Receive Date: 20080429
  Receipt Date: 20071003
  Transmission Date: 20081010
  Serious: No
  Sender: FDA-Public Use
  Company Number: US-ASTRAZENECA-2007UW23152

PATIENT
  Age: 69 Year
  Sex: Female
  Weight: 70.3 kg

DRUGS (3)
  1. NEXIUM [Suspect]
     Route: 048
     Dates: start: 20070801
  2. NEXIUM [Suspect]
     Route: 048
     Dates: start: 20070901
  3. NORVASC [Concomitant]

REACTIONS (3)
  - CHEST DISCOMFORT [None]
  - DRY MOUTH [None]
  - THROAT TIGHTNESS [None]
